FAERS Safety Report 7970488-8 (Version None)
Quarter: 2011Q4

REPORT INFORMATION
  Report Type: 
  Country: None (occurrence: None)
  Receive Date: 20111212
  Receipt Date: 20111207
  Transmission Date: 20120403
  Serious: Yes (Life-Threatening, Hospitalization, Other)
  Sender: FDA-Public Use
  Company Number: PHHO2010DE18334

PATIENT
  Sex: Male
  Weight: 71 kg

DRUGS (17)
  1. ENALAPRIL MALEATE [Suspect]
     Indication: CARDIAC FAILURE
     Dosage: UNK
     Route: 048
     Dates: start: 20101112
  2. AMIODARONE HCL [Concomitant]
     Indication: VENTRICULAR ARRHYTHMIA
     Dosage: UNK
  3. BLINDED ALISKIREN [Suspect]
     Dosage: CODE NOT BROKEN
     Route: 048
     Dates: start: 20110107, end: 20110330
  4. BLINDED NO TREATMENT RECEIVED [Suspect]
     Dosage: CODE NOT BROKEN
     Route: 048
     Dates: start: 20110107, end: 20110330
  5. TORSEMIDE [Concomitant]
     Indication: CARDIAC FAILURE CONGESTIVE
     Dosage: UNK
  6. BISOPROLOL FUMARATE [Concomitant]
     Dosage: 2.5 MG, UNK
     Dates: start: 20110129
  7. ASPIRIN [Concomitant]
     Dosage: UNK
  8. ENALAPRIL MALEATE [Suspect]
     Dosage: CODE NOT BROKEN
     Route: 048
     Dates: start: 20110107, end: 20110330
  9. METOPROLOL TARTRATE [Concomitant]
     Indication: CARDIAC FAILURE CONGESTIVE
     Dosage: UNK
  10. METOPROLOL TARTRATE [Concomitant]
     Dosage: DOSE DECREASED (3X50 MG)
  11. PANTOPRAZOLE [Concomitant]
     Indication: ABDOMINAL DISCOMFORT
     Dosage: 40 MG, UNK
     Dates: start: 20100503
  12. ALISKIREN [Suspect]
     Indication: CARDIAC FAILURE
     Dosage: UNK
     Dates: start: 20101209, end: 20110107
  13. EPLERENONE [Concomitant]
     Indication: CARDIAC FAILURE CONGESTIVE
     Dosage: UNK
  14. EZETIMIBE [Concomitant]
     Indication: HYPERLIPIDAEMIA
     Dosage: 20 MG, UNK
     Dates: start: 20100301
  15. SIMVASTATIN [Concomitant]
     Indication: HYPERLIPIDAEMIA
     Dosage: 200 MG, UNK
     Dates: start: 20101204
  16. TRIAMTERENE AND HYDROCHLOROTHIAZIDE [Concomitant]
  17. EZETIMIBE [Concomitant]

REACTIONS (6)
  - DRUG INEFFECTIVE [None]
  - DYSPNOEA [None]
  - INFECTION [None]
  - LOCALISED INFECTION [None]
  - CARDIAC FAILURE CHRONIC [None]
  - DISEASE PROGRESSION [None]
